FAERS Safety Report 8081630-5 (Version None)
Quarter: 2012Q1

REPORT INFORMATION
  Report Type: 
  Country: None (occurrence: None)
  Receive Date: 20120130
  Receipt Date: 20120124
  Transmission Date: 20120608
  Serious: Yes (Hospitalization)
  Sender: FDA-Public Use
  Company Number: SE-PFIZER INC-2011219488

PATIENT
  Age: 77 Year
  Sex: Male

DRUGS (9)
  1. ADALAT [Concomitant]
     Dosage: UNK
  2. METOPROLOL SUCCINATE [Concomitant]
     Dosage: UNK
  3. IBUPROFEN [Suspect]
     Dosage: UNK
     Dates: end: 20110804
  4. SALURES [Suspect]
     Dosage: UNK
     Dates: end: 20110804
  5. ZOLPIDEM [Suspect]
     Dosage: UNK
     Dates: end: 20110804
  6. ASPIRIN [Concomitant]
     Dosage: UNK
  7. PROPAVAN [Suspect]
     Dosage: UNK
     Dates: end: 20110804
  8. OMEPRAZOLE [Concomitant]
     Dosage: UNK
  9. RAMIPRIL [Suspect]
     Dosage: 10 MG, UNK
     Route: 048

REACTIONS (3)
  - HYPONATRAEMIA [None]
  - CONFUSIONAL STATE [None]
  - BLOOD CREATININE INCREASED [None]
